FAERS Safety Report 11928166 (Version 2)
Quarter: 2016Q1

REPORT INFORMATION
  Report Type: Spontaneous
  Country: US (occurrence: US)
  Receive Date: 20160119
  Receipt Date: 20160202
  Transmission Date: 20160526
  Serious: Yes (Other)
  Sender: FDA-Public Use
  Company Number: US-INSYS THERAPEUTICS, INC-INS201601-000005

PATIENT
  Age: 77 Year
  Sex: Male
  Weight: 78.47 kg

DRUGS (7)
  1. MORPHINE [Concomitant]
     Active Substance: MORPHINE
  2. FENTANYL. [Concomitant]
     Active Substance: FENTANYL
     Indication: BREAKTHROUGH PAIN
  3. SUBSYS [Suspect]
     Active Substance: FENTANYL
     Indication: BREAKTHROUGH PAIN
     Route: 060
     Dates: start: 20151210, end: 20151218
  4. NEXIUM [Concomitant]
     Active Substance: ESOMEPRAZOLE MAGNESIUM
  5. VITAMIN B12 [Concomitant]
     Active Substance: CYANOCOBALAMIN
  6. ALPRAZOLAM. [Concomitant]
     Active Substance: ALPRAZOLAM
  7. PRAVASTATIN [Concomitant]
     Active Substance: PRAVASTATIN\PRAVASTATIN SODIUM

REACTIONS (3)
  - Condition aggravated [Unknown]
  - Hypertension [Unknown]
  - Tumour haemorrhage [Unknown]

NARRATIVE: CASE EVENT DATE: 20151210
